FAERS Safety Report 8948277 (Version 1)
Quarter: 2012Q4

REPORT INFORMATION
  Report Type: Spontaneous
  Country: US (occurrence: None)
  Receive Date: 20121206
  Receipt Date: 20121206
  Transmission Date: 20130627
  Serious: No
  Sender: FDA-Public Use
  Company Number: None

PATIENT
  Age: 56 Year
  Sex: Female
  Weight: 72.58 kg

DRUGS (2)
  1. METHYLPREDNISOLONE ACETATE [Suspect]
     Indication: CERVICAL SPINAL STENOSIS
     Dosage: 80mg PRN Epidural
     Route: 008
     Dates: start: 20120717, end: 20120926
  2. METHYLPREDNISOLONE ACETATE [Suspect]
     Indication: RADICULAR PAIN
     Dosage: 80mg PRN Epidural
     Route: 008
     Dates: start: 20120717, end: 20120926

REACTIONS (8)
  - Urinary tract disorder [None]
  - Nausea [None]
  - Disturbance in attention [None]
  - Headache [None]
  - Chest pain [None]
  - Sensation of heaviness [None]
  - Chills [None]
  - Fungal infection [None]
